FAERS Safety Report 5296678-3 (Version None)
Quarter: 2007Q2

REPORT INFORMATION
  Report Type: 
  Country: None (occurrence: None)
  Receive Date: 20070413
  Receipt Date: 20070330
  Transmission Date: 20071010
  Serious: Yes (Other)
  Sender: FDA-Public Use
  Company Number: GB-GENENTECH-239736

PATIENT
  Sex: Female
  Weight: 69 kg

DRUGS (1)
  1. HERCEPTIN [Suspect]
     Indication: DRUG USE FOR UNKNOWN INDICATION
     Dosage: 400 MG, 3/WEEK
     Route: 042
     Dates: start: 20061010

REACTIONS (3)
  - ANXIETY [None]
  - DEPRESSION [None]
  - INSOMNIA [None]
